FAERS Safety Report 6847487-2 (Version None)
Quarter: 2010Q3

REPORT INFORMATION
  Report Type: 
  Country: None (occurrence: None)
  Receive Date: 20100716
  Receipt Date: 20100705
  Transmission Date: 20110219
  Serious: Yes (Other)
  Sender: FDA-Public Use
  Company Number: JP-PFIZER INC-2010083696

PATIENT
  Sex: Male

DRUGS (3)
  1. LYRICA [Suspect]
     Dosage: 75 MG, 1X/DAY
     Route: 048
     Dates: start: 20100625, end: 20100629
  2. LYRICA [Suspect]
     Dosage: 75 MG, 2X/DAY
     Route: 048
     Dates: start: 20100630, end: 20100701
  3. GABAPEN [Suspect]
     Dosage: 200 MG, 3X/DAY
     Route: 048
     Dates: start: 20100525

REACTIONS (2)
  - ECZEMA [None]
  - STOMATITIS NECROTISING [None]
